FAERS Safety Report 7352187-9 (Version None)
Quarter: 2011Q1

REPORT INFORMATION
  Report Type: 
  Country: None (occurrence: None)
  Receive Date: 20110315
  Receipt Date: 20100916
  Transmission Date: 20110831
  Serious: Yes (Hospitalization)
  Sender: FDA-Public Use
  Company Number: US-BAYER-201013956NA

PATIENT
  Sex: Female
  Weight: 149.66 kg

DRUGS (27)
  1. YAZ [Suspect]
     Dosage: UNK UNK, UNK
     Route: 048
     Dates: start: 20070101, end: 20090101
  2. LORTAB [Concomitant]
     Indication: PAIN
     Dosage: UNK
     Dates: start: 20080101
  3. ELMIRON [Concomitant]
     Dosage: 100 MG, TID
     Dates: start: 20070101
  4. RELPAX [Concomitant]
     Indication: MIGRAINE
     Dosage: 40 MG, Q2HR
     Dates: start: 20070913
  5. IBUPROFEN [Concomitant]
     Dosage: UNK UNK, PRN
  6. NAPROXEN [Concomitant]
     Dosage: 500 MG, QD
     Dates: start: 20070101
  7. ACIPHEX [Concomitant]
     Dosage: 20 MG, QD
     Dates: start: 20080701
  8. SULFAMETHOXAZOLE AND TRIMETHOPRIM [Concomitant]
     Dosage: UNK
     Dates: start: 20080101
  9. PROTONIX [Concomitant]
     Dosage: 40 MG, QD
     Dates: start: 20070101
  10. METRONIDAZOLE [Concomitant]
     Dosage: 500 MG, QID
     Dates: start: 20080101
  11. YAZ [Suspect]
     Dosage: UNK
     Dates: start: 20090808, end: 20091017
  12. NAPROXEN [Concomitant]
     Dosage: 500 UNK, UNK
     Dates: start: 20080101
  13. PROMETHAZINE - CODEINE [CODEINE PHOSPHATE,PROMETHAZINE HYDROCHLORIDE] [Concomitant]
     Indication: COUGH
     Dosage: UNK
     Dates: start: 20070101
  14. PHENAZOPYRIDINE HCL TAB [Concomitant]
     Dosage: 200 MG, TID
  15. AMOXICILLIN [Concomitant]
     Dosage: 500 MG, TID
     Dates: start: 20070101
  16. AMOXICILLIN AND CLAVULANATE POTASSIUM [Concomitant]
     Dosage: 875 MG, UNK
  17. AUGMENTIN '125' [Concomitant]
     Dosage: UNK
     Dates: start: 20080101
  18. FUROSEMIDE [Concomitant]
     Dosage: 40 MG, QD
     Dates: start: 20070101
  19. HYDROCODONE/ACETAMINOPHEN [Concomitant]
     Dosage: UNK UNK, PRN
     Dates: start: 20080101
  20. HALFLYTELY [MACROGOL,POTASSIUM CHLORIDE,SODIUM BICARBONATE] [Concomitant]
     Dosage: UNK
     Dates: start: 20070626
  21. BACTRIM DS [Concomitant]
     Dosage: UNK UNK, BID
     Dates: start: 20080101
  22. FLAGYL [Concomitant]
     Dosage: 500 MG, QID
     Dates: start: 20080101
  23. BELLADONNA W/ERGOTAMINE/PHENOBARBITAL [Concomitant]
     Dosage: 16.2 MG, UNK
     Dates: start: 20070101
  24. QUININE SULFATE [Concomitant]
     Dosage: 325 MG, HS
     Dates: start: 20070101
  25. PIROXICAM [Concomitant]
     Dosage: 20 MG, UNK
     Dates: start: 20070101
  26. POTASSIUM CHLORIDE [Concomitant]
     Dosage: 20 MEQ, QID
     Dates: start: 20070101
  27. HYOSCYAMINE SULFATE [Concomitant]
     Dosage: 0.125 MG, UNK

REACTIONS (5)
  - CHOLELITHIASIS [None]
  - NAUSEA [None]
  - CHOLECYSTITIS CHRONIC [None]
  - VOMITING [None]
  - DIARRHOEA [None]
